FAERS Safety Report 5721361-7 (Version None)
Quarter: 2008Q2

REPORT INFORMATION
  Report Type: 
  Country: None (occurrence: None)
  Receive Date: 20080429
  Receipt Date: 20080423
  Transmission Date: 20081010
  Serious: Yes (Death, Hospitalization)
  Sender: FDA-Public Use
  Company Number: FR-SANOFI-SYNTHELABO-F01200800277

PATIENT
  Sex: Male
  Weight: 105 kg

DRUGS (15)
  1. NOCTAMIDE [Concomitant]
     Dosage: UNK
     Route: 065
     Dates: end: 20080121
  2. NOZINAN [Concomitant]
     Dosage: UNK
     Route: 065
     Dates: end: 20080121
  3. ATORVASTATIN CALCIUM [Concomitant]
     Dosage: UNK
     Route: 065
     Dates: end: 20080121
  4. AMLOR [Concomitant]
     Dosage: UNK
     Route: 065
     Dates: end: 20080121
  5. RIVOTRIL [Concomitant]
     Dosage: UNK
     Route: 065
     Dates: end: 20080121
  6. IKOREL [Concomitant]
     Dosage: UNK
     Route: 065
     Dates: end: 20080121
  7. PLAVIX [Concomitant]
     Dosage: UNK
     Route: 065
     Dates: end: 20080121
  8. DEROXAT [Concomitant]
     Dosage: UNK
     Route: 065
     Dates: end: 20080101
  9. SPIRIVA [Concomitant]
     Dosage: UNK
     Route: 065
     Dates: end: 20080121
  10. LASILIX [Concomitant]
     Dosage: UNK
     Route: 065
     Dates: end: 20080121
  11. ENDOTELON [Concomitant]
     Dosage: UNK
     Route: 065
     Dates: end: 20080121
  12. GEMCITABINE [Suspect]
     Indication: DIFFUSE LARGE B-CELL LYMPHOMA RECURRENT
     Route: 042
     Dates: start: 20080104, end: 20080104
  13. ENZASTAURIN [Suspect]
     Indication: DIFFUSE LARGE B-CELL LYMPHOMA RECURRENT
     Dosage: 500 MG
     Route: 048
     Dates: start: 20080120, end: 20080120
  14. OXALIPLATIN [Suspect]
     Indication: DIFFUSE LARGE B-CELL LYMPHOMA RECURRENT
     Route: 042
     Dates: start: 20071108, end: 20071108
  15. RITUXIMAB [Suspect]
     Indication: DIFFUSE LARGE B-CELL LYMPHOMA RECURRENT
     Route: 042
     Dates: start: 20080103, end: 20080103

REACTIONS (1)
  - ACUTE RESPIRATORY DISTRESS SYNDROME [None]
